FAERS Safety Report 9608368 (Version 1)
Quarter: 2013Q4

REPORT INFORMATION
  Report Type: Spontaneous
  Country: GB (occurrence: None)
  Receive Date: 20131007
  Receipt Date: 20131007
  Transmission Date: 20140711
  Serious: Yes (Hospitalization)
  Sender: FDA-Public Use
  Company Number: AUR-APL-2013-08135

PATIENT
  Age: 73 Year
  Sex: Female

DRUGS (2)
  1. QUETIAPINE [Suspect]
     Indication: PARANOIA
     Route: 048
     Dates: start: 20130823, end: 20130902
  2. CLINDAMYCIN [Concomitant]

REACTIONS (4)
  - Drug reaction with eosinophilia and systemic symptoms [None]
  - Angioedema [None]
  - Toxic skin eruption [None]
  - Renal failure acute [None]
